FAERS Safety Report 21274649 (Version 4)
Quarter: 2023Q2

REPORT INFORMATION
  Report Type: Spontaneous
  Country: US (occurrence: US)
  Receive Date: 20220831
  Receipt Date: 20230417
  Transmission Date: 20230721
  Serious: Yes (Disabling)
  Sender: FDA-Public Use
  Company Number: US-AMERICAN REGENT INC-2022001852

PATIENT
  Sex: Female

DRUGS (2)
  1. FERRIC CARBOXYMALTOSE [Suspect]
     Active Substance: FERRIC CARBOXYMALTOSE
     Indication: Iron deficiency anaemia
     Dosage: 750 MILLIGRAM, SINGLE
     Route: 042
     Dates: start: 20180126, end: 20180126
  2. FERRIC CARBOXYMALTOSE [Suspect]
     Active Substance: FERRIC CARBOXYMALTOSE
     Dosage: 750 MILLIGRAM, SINGLE
     Route: 042
     Dates: start: 20180202, end: 20180202

REACTIONS (10)
  - Asthenia [Not Recovered/Not Resolved]
  - Pain [Not Recovered/Not Resolved]
  - Anxiety [Not Recovered/Not Resolved]
  - Bone loss [Not Recovered/Not Resolved]
  - Stress [Not Recovered/Not Resolved]
  - Hypophosphataemia [Recovered/Resolved]
  - Arthralgia [Not Recovered/Not Resolved]
  - Anhedonia [Not Recovered/Not Resolved]
  - Emotional distress [Not Recovered/Not Resolved]
  - Product quality issue [Not Recovered/Not Resolved]

NARRATIVE: CASE EVENT DATE: 20200101
